FAERS Safety Report 24183446 (Version 3)
Quarter: 2025Q1

REPORT INFORMATION
  Report Type: Spontaneous
  Country: US (occurrence: US)
  Receive Date: 20240807
  Receipt Date: 20250123
  Transmission Date: 20250408
  Serious: Yes (Other)
  Sender: CATALYST PHARMA
  Company Number: US-CATALYST PHARMACEUTICALS, INC-US-CATA-24-00276

PATIENT
  Sex: Female
  Weight: 49.8 kg

DRUGS (27)
  1. FIRDAPSE [Suspect]
     Active Substance: AMIFAMPRIDINE PHOSPHATE
     Indication: Myasthenic syndrome
     Dosage: 5MG 3 TIMES A DAY FOR 7 DAYS THEN INCREASE BY 5MG EVERY 7 DAYS TO A MAX OF 10MG 3 TIMES PER DAY
     Route: 048
     Dates: start: 20240312, end: 2024
  2. FIRDAPSE [Suspect]
     Active Substance: AMIFAMPRIDINE PHOSPHATE
     Dosage: 15MG , 15MG, 10MG
     Route: 048
     Dates: start: 2024, end: 20240424
  3. FIRDAPSE [Suspect]
     Active Substance: AMIFAMPRIDINE PHOSPHATE
     Dosage: 1.5 TABLETS 3X DAILY
     Route: 048
     Dates: start: 20240425, end: 20240528
  4. FIRDAPSE [Suspect]
     Active Substance: AMIFAMPRIDINE PHOSPHATE
     Dosage: 20 MG IN THE MORNING, 15 MG IN THE AFTERNOON, AND 15 MG AT BEDTIME
     Route: 048
     Dates: start: 20240529, end: 2024
  5. FIRDAPSE [Suspect]
     Active Substance: AMIFAMPRIDINE PHOSPHATE
     Dosage: 15MG 3 TIMES PER DAY
     Route: 048
     Dates: start: 2024
  6. FIRDAPSE [Suspect]
     Active Substance: AMIFAMPRIDINE PHOSPHATE
     Dosage: 50 MILLIGRAM, A DAY
     Route: 048
  7. XGEVA [Concomitant]
     Active Substance: DENOSUMAB
     Indication: Plasma cell myeloma
     Route: 065
  8. VITAMIN B12 [Concomitant]
     Active Substance: CYANOCOBALAMIN
     Indication: Hypovitaminosis
     Dosage: 1000 MCG DAILY
     Route: 065
  9. POTASSIUM CHLORIDE EXTENDED RELEASE [Concomitant]
     Active Substance: POTASSIUM CHLORIDE
     Indication: Hypokalaemia
     Dosage: 10 MEQ DAILY
     Route: 065
  10. MINERALS\VITAMINS [Concomitant]
     Active Substance: MINERALS\VITAMINS
     Indication: Hypovitaminosis
     Dosage: 1 TABLET ONCE DAILY
     Route: 065
  11. CALCIUM\VITAMIN D [Concomitant]
     Active Substance: CALCIUM\VITAMIN D
     Indication: Hypovitaminosis
     Dosage: 600/10 MG TWO TABLETS DAILY
     Route: 065
  12. IMODIUM AD [Concomitant]
     Active Substance: LOPERAMIDE HYDROCHLORIDE
     Indication: Diarrhoea
     Route: 065
  13. SODIUM CHLORIDE [Concomitant]
     Active Substance: SODIUM CHLORIDE
     Indication: Nasal congestion
     Dosage: ONE SPRAY DAILY
     Route: 045
  14. ENSURE MEAL REPLACEMENT SHAKE [Concomitant]
     Indication: Nutritional supplementation
     Dosage: ONE CARTON DAILY
     Route: 048
  15. PROLIA [Concomitant]
     Active Substance: DENOSUMAB
     Indication: Osteoporosis
     Dosage: 60 MG EVERY 4 WEEKS
     Route: 065
  16. PROLIA [Concomitant]
     Active Substance: DENOSUMAB
     Route: 065
  17. DARZALEX [Concomitant]
     Active Substance: DARATUMUMAB
     Indication: Plasma cell myeloma
     Route: 042
  18. DEXAMETHASONE [Concomitant]
     Active Substance: DEXAMETHASONE
     Indication: Plasma cell myeloma
     Route: 048
  19. DEXAMETHASONE [Concomitant]
     Active Substance: DEXAMETHASONE
     Route: 048
  20. POMALYST [Concomitant]
     Active Substance: POMALIDOMIDE
     Indication: Plasma cell myeloma
     Route: 065
  21. FAMOTIDINE [Concomitant]
     Active Substance: FAMOTIDINE
     Indication: Plasma cell myeloma
     Dosage: 20 MG TWICE DAILY
     Route: 065
  22. ESTRACE [Concomitant]
     Active Substance: ESTRADIOL
     Indication: Hormone replacement therapy
     Dosage: 0.1 MG/G ONE APPLICATION DAILY
     Route: 067
  23. ACYCLOVIR [Concomitant]
     Active Substance: ACYCLOVIR
     Indication: Antiviral treatment
     Dosage: 800 MG TWICE DAILY
     Route: 065
  24. ASPIRIN [Concomitant]
     Active Substance: ASPIRIN
     Indication: Thrombosis prophylaxis
     Dosage: 81 MG DAILY
     Route: 065
  25. ONDANSETRON [Concomitant]
     Active Substance: ONDANSETRON
     Indication: Nausea
     Route: 065
  26. SALINE [Concomitant]
     Active Substance: SODIUM CHLORIDE
     Indication: Nasal congestion
     Dosage: ONE SPRAY DAILY
     Route: 045
  27. MAGNESIUM OXIDE [Concomitant]
     Active Substance: MAGNESIUM OXIDE
     Indication: Constipation
     Route: 065

REACTIONS (19)
  - Plasma cell myeloma recurrent [Not Recovered/Not Resolved]
  - Condition aggravated [Not Recovered/Not Resolved]
  - Pruritus [Not Recovered/Not Resolved]
  - Condition aggravated [Not Recovered/Not Resolved]
  - Balance disorder [Unknown]
  - Musculoskeletal stiffness [Not Recovered/Not Resolved]
  - Red blood cell count decreased [Not Recovered/Not Resolved]
  - White blood cell count decreased [Not Recovered/Not Resolved]
  - Neutrophil count decreased [Not Recovered/Not Resolved]
  - Headache [Unknown]
  - Paraesthesia [Not Recovered/Not Resolved]
  - Paraesthesia oral [Not Recovered/Not Resolved]
  - Abdominal pain upper [Unknown]
  - Pain in extremity [Unknown]
  - Diarrhoea [Unknown]
  - Feeling abnormal [Not Recovered/Not Resolved]
  - Constipation [Recovered/Resolved]
  - Nasopharyngitis [Recovered/Resolved]
  - Therapeutic product effect decreased [Unknown]

NARRATIVE: CASE EVENT DATE: 20240101
